FAERS Safety Report 4622952-7 (Version None)
Quarter: 2005Q1

REPORT INFORMATION
  Report Type: 
  Country: None (occurrence: None)
  Receive Date: 20050329
  Receipt Date: 20050329
  Transmission Date: 20050727
  Serious: No
  Sender: FDA-Public Use
  Company Number: 9602

PATIENT
  Age: 63 Year
  Sex: Female

DRUGS (10)
  1. CARBOPLATIN [Suspect]
     Indication: SMALL CELL LUNG CANCER STAGE UNSPECIFIED
     Dosage: IV
     Route: 042
     Dates: start: 20040803
  2. ETOPOSIDE [Suspect]
     Indication: SMALL CELL LUNG CANCER STAGE UNSPECIFIED
     Dosage: IV
     Route: 042
     Dates: start: 20040803
  3. PEGFILGRASTIM [Suspect]
     Dosage: SC
     Route: 058
     Dates: start: 20040803, end: 20040803
  4. DOMPERIDONE [Concomitant]
  5. DEXAMETHASONE [Concomitant]
  6. GRANISETRON [Concomitant]
  7. NICORANDIL [Concomitant]
  8. FLUCONAZOLE [Concomitant]
  9. CIPROFLOXACIN [Concomitant]
  10. SIMVASTATIN [Concomitant]

REACTIONS (8)
  - ASTHENIA [None]
  - BALANCE DISORDER [None]
  - CONFUSIONAL STATE [None]
  - DISORIENTATION [None]
  - FEELING ABNORMAL [None]
  - NEUTROPENIA [None]
  - NUCLEAR MAGNETIC RESONANCE IMAGING BRAIN ABNORMAL [None]
  - PETIT MAL EPILEPSY [None]
